FAERS Safety Report 4763901-0 (Version None)
Quarter: 2005Q3

REPORT INFORMATION
  Report Type: 
  Country: None (occurrence: None)
  Receive Date: 20050906
  Receipt Date: 20050506
  Transmission Date: 20060218
  Serious: No
  Sender: FDA-Public Use
  Company Number: 2005-BP-07855BP

PATIENT
  Age: 76 Year
  Sex: Female

DRUGS (9)
  1. SPIRIVA [Suspect]
     Indication: CHRONIC OBSTRUCTIVE PULMONARY DISEASE
     Dosage: 18 MCG IH
     Route: 055
  2. COMBIVENT [Suspect]
  3. LANOXIN [Concomitant]
  4. POTASSIUM (POTASSIUM) [Concomitant]
  5. LASIX [Concomitant]
  6. ALTACE [Concomitant]
  7. GUAIFENESIN (GUAIFENESIN) [Concomitant]
  8. PREDNISONE [Concomitant]
  9. PEPCID [Concomitant]

REACTIONS (2)
  - DRUG INEFFECTIVE [None]
  - DYSGEUSIA [None]
